FAERS Safety Report 8692326 (Version 2)
Quarter: 2012Q4

REPORT INFORMATION
  Report Type: 
  Country: JP (occurrence: JP)
  Receive Date: 20120730
  Receipt Date: 20120921
  Transmission Date: 20130627
  Serious: Yes (Death, Other)
  Sender: FDA-Public Use
  Company Number: PHHY2012JP064434

PATIENT
  Age: 51 Year
  Sex: Male
  Weight: 57.7 kg

DRUGS (10)
  1. METHYLPREDNISOLONE [Suspect]
     Dosage: 250 mg, UNK
  2. METHYLPREDNISOLONE [Suspect]
     Dosage: 60 mg, UNK
  3. CYCLOPHOSPHAMIDE [Suspect]
     Indication: B-CELL LYMPHOMA
     Dosage: 1200 mg, UNK
  4. DOXORUBICIN [Suspect]
     Indication: B-CELL LYMPHOMA
     Dosage: 80 mg, UNK
  5. VINCRISTINE [Suspect]
     Indication: B-CELL LYMPHOMA
     Dosage: 2 mg, UNK
  6. DIPOTASSIUM PHOSPHATE [Concomitant]
     Indication: HYPOPHOSPHATAEMIA
     Dosage: 10 MEq, UNK
  7. DIPOTASSIUM PHOSPHATE [Concomitant]
     Dosage: 20 MEq, UNK
  8. ALLOPURINOL [Concomitant]
     Indication: TUMOUR LYSIS SYNDROME
     Dosage: 200 mg, UNK
  9. ALLOPURINOL [Concomitant]
     Dosage: 300 mg, UNK
  10. SODIUM BICARBONATE [Concomitant]
     Indication: METABOLIC ACIDOSIS

REACTIONS (5)
  - Gastrointestinal haemorrhage [Fatal]
  - Concomitant disease aggravated [Fatal]
  - Tumour lysis syndrome [Unknown]
  - Disseminated intravascular coagulation [Unknown]
  - Hyperphosphataemia [Unknown]
